FAERS Safety Report 7011570-1 (Version None)
Quarter: 2010Q3

REPORT INFORMATION
  Report Type: 
  Country: None (occurrence: None)
  Receive Date: 20100923
  Receipt Date: 20090309
  Transmission Date: 20110219
  Serious: No
  Sender: FDA-Public Use
  Company Number: US-WYE-H08512209

PATIENT
  Sex: Female

DRUGS (9)
  1. PREMARIN [Suspect]
     Indication: HORMONE REPLACEMENT THERAPY
     Dosage: NOT PROVIDED
     Route: 048
     Dates: end: 20040401
  2. PREMARIN [Suspect]
     Dosage: 0.3MG
     Route: 048
     Dates: start: 20070601, end: 20070801
  3. PREMARIN [Suspect]
     Dosage: 0.45 MG
     Route: 048
     Dates: start: 20070801, end: 20071001
  4. PREMARIN [Suspect]
     Dosage: 0.625 MG, AND THEN GRADUALLY ^ WORKING HER WAY DOWN THROUGH THE DOSES^
     Route: 048
     Dates: start: 20071001, end: 20081001
  5. ACETYLSALICYLIC ACID [Concomitant]
     Route: 048
  6. FISH OIL, HYDROGENATED [Concomitant]
     Dosage: 2000 IU DAILY
  7. CYANOCOBALAMIN [Concomitant]
     Dosage: NOT PROVIDED
  8. SIMVASTATIN [Concomitant]
     Indication: BLOOD CHOLESTEROL INCREASED
     Dosage: NOT PROVIDED
  9. ALLEGRA D 24 HOUR [Concomitant]
     Indication: HYPERSENSITIVITY
     Dosage: 1AM,

REACTIONS (3)
  - ALOPECIA [None]
  - ANXIETY [None]
  - CONDITION AGGRAVATED [None]
